FAERS Safety Report 9745539 (Version 1)
Quarter: 2013Q4

REPORT INFORMATION
  Report Type: Spontaneous
  Country: BE (occurrence: BE)
  Receive Date: 20131211
  Receipt Date: 20131211
  Transmission Date: 20140711
  Serious: Yes (Other)
  Sender: FDA-Public Use
  Company Number: BE-JNJFOC-20131202094

PATIENT
  Sex: Female

DRUGS (1)
  1. TOPAMAX [Suspect]
     Indication: PRODUCT USED FOR UNKNOWN INDICATION
     Route: 048

REACTIONS (10)
  - Nephrolithiasis [Unknown]
  - Renal disorder [Unknown]
  - Sepsis [Unknown]
  - Vision blurred [Unknown]
  - Heart rate increased [Unknown]
  - Fatigue [Unknown]
  - Paraesthesia [Unknown]
  - Insomnia [Unknown]
  - Hyperhidrosis [Unknown]
  - Feeling hot [Unknown]
